FAERS Safety Report 10225204 (Version 4)
Quarter: 2014Q4

REPORT INFORMATION
  Report Type: Report from Study
  Country: US (occurrence: US)
  Receive Date: 20140609
  Receipt Date: 20141006
  Transmission Date: 20150528
  Serious: Yes (Hospitalization)
  Sender: FDA-Public Use
  Company Number: US-VERTEX PHARMACEUTICALS INC-2014-002604

PATIENT
  Age: 22 Year
  Sex: Female

DRUGS (1)
  1. IVACAFTOR [Suspect]
     Active Substance: IVACAFTOR
     Indication: CYSTIC FIBROSIS
     Dosage: 150 MG, QD
     Route: 065
     Dates: start: 20140528

REACTIONS (3)
  - Pulmonary congestion [Not Recovered/Not Resolved]
  - Investigation [Unknown]
  - Nausea [Unknown]

NARRATIVE: CASE EVENT DATE: 20140528
